FAERS Safety Report 4887958-1 (Version None)
Quarter: 2006Q1

REPORT INFORMATION
  Report Type: 
  Country: None (occurrence: None)
  Receive Date: 20060123
  Receipt Date: 20050421
  Transmission Date: 20060701
  Serious: Yes (Other)
  Sender: FDA-Public Use
  Company Number: US-MERCK-0504USA04287

PATIENT
  Age: 54 Year
  Sex: Male
  Weight: 97 kg

DRUGS (9)
  1. VIOXX [Suspect]
     Route: 048
     Dates: end: 20020118
  2. VIOXX [Suspect]
     Route: 048
     Dates: start: 20020118
  3. ATENOLOL [Concomitant]
     Route: 048
  4. VASOTEC [Concomitant]
     Route: 048
  5. ASPIRIN [Concomitant]
     Route: 065
  6. VITAMIN E [Concomitant]
     Route: 065
  7. VANCERIL [Concomitant]
     Route: 065
  8. ALBUTEROL [Concomitant]
     Route: 065
  9. COZAAR [Concomitant]
     Route: 065

REACTIONS (4)
  - CHEST DISCOMFORT [None]
  - CORONARY ARTERY DISEASE [None]
  - NON-CARDIAC CHEST PAIN [None]
  - VENTRICULAR HYPOKINESIA [None]
